FAERS Safety Report 8419932-2 (Version None)
Quarter: 2012Q2

REPORT INFORMATION
  Report Type: 
  Country: None (occurrence: None)
  Receive Date: 20120323
  Receipt Date: 20110314
  Transmission Date: 20120825
  Serious: Yes (Other)
  Sender: FDA-Public Use
  Company Number: 163-21880-11022931

PATIENT
  Age: 69 Year
  Sex: Male

DRUGS (7)
  1. ZESTRIL [Concomitant]
  2. DECADRON [Concomitant]
  3. ASPIRIN [Concomitant]
  4. REVLIMID [Suspect]
     Indication: MULTIPLE MYELOMA
     Dosage: 20 MG, QD X 21 DAYS, OFF 7, PO ; 15 MG, QD X 21 DAYS, OFF 7, PO ; 10 MG, QD X 21 DAYS, PO
     Route: 048
     Dates: start: 20110314
  5. REVLIMID [Suspect]
     Indication: MULTIPLE MYELOMA
     Dosage: 20 MG, QD X 21 DAYS, OFF 7, PO ; 15 MG, QD X 21 DAYS, OFF 7, PO ; 10 MG, QD X 21 DAYS, PO
     Route: 048
     Dates: start: 20101001, end: 20101221
  6. REVLIMID [Suspect]
     Indication: MULTIPLE MYELOMA
     Dosage: 20 MG, QD X 21 DAYS, OFF 7, PO ; 15 MG, QD X 21 DAYS, OFF 7, PO ; 10 MG, QD X 21 DAYS, PO
     Route: 048
     Dates: start: 20110101, end: 20110218
  7. DILANTIN [Concomitant]

REACTIONS (1)
  - PANCYTOPENIA [None]
